FAERS Safety Report 4689524-X (Version None)
Quarter: 2005Q2

REPORT INFORMATION
  Report Type: 
  Country: None (occurrence: None)
  Receive Date: 20050614
  Receipt Date: 20050608
  Transmission Date: 20051028
  Serious: Yes (Other)
  Sender: FDA-Public Use
  Company Number: PHNU2005DE02200

PATIENT
  Sex: Female

DRUGS (2)
  1. ZOMETA [Suspect]
     Indication: BREAST CANCER FEMALE
     Dosage: 4 MG, UNK
     Dates: start: 20020701, end: 20040701
  2. AREDIA [Suspect]
     Indication: BREAST CANCER FEMALE
     Dosage: 90 MG, UNK
     Dates: start: 20000601, end: 20020601

REACTIONS (1)
  - ASEPTIC NECROSIS BONE [None]
